FAERS Safety Report 5251662-0 (Version None)
Quarter: 2007Q1

REPORT INFORMATION
  Report Type: 
  Country: None (occurrence: None)
  Receive Date: 20070228
  Receipt Date: 20061004
  Transmission Date: 20070707
  Serious: No
  Sender: FDA-Public Use
  Company Number: US-GLAXOSMITHKLINE-A0622471A

PATIENT
  Age: 24 Year
  Sex: Female

DRUGS (3)
  1. LAMICTAL [Suspect]
     Indication: BIPOLAR DISORDER
     Dosage: 25MG PER DAY
     Route: 048
     Dates: start: 20060923, end: 20061002
  2. BIRTH CONTROL PILL [Concomitant]
  3. ADDERALL 10 [Concomitant]

REACTIONS (3)
  - EYE SWELLING [None]
  - LIP SWELLING [None]
  - RASH [None]
